FAERS Safety Report 8188135-1 (Version None)
Quarter: 2012Q1

REPORT INFORMATION
  Report Type: 
  Country: None (occurrence: None)
  Receive Date: 20120306
  Receipt Date: 20120301
  Transmission Date: 20120608
  Serious: Yes (Hospitalization, Other)
  Sender: FDA-Public Use
  Company Number: US-BAYER-2010-006632

PATIENT
  Age: 29 Year
  Sex: Female
  Weight: 47.392 kg

DRUGS (10)
  1. YASMIN [Suspect]
     Dosage: UNK
     Route: 048
     Dates: start: 20080701, end: 20080701
  2. DROSPIRENONE AND ETHINYL ESTRADIOL [Suspect]
     Indication: MENSTRUATION IRREGULAR
     Dosage: UNK
     Route: 048
     Dates: start: 20080801, end: 20100101
  3. MICONAZOLE [Concomitant]
     Dosage: UNK
     Dates: start: 20080218
  4. YAZ [Suspect]
     Indication: MENSTRUATION IRREGULAR
     Dosage: UNK
     Route: 048
     Dates: start: 20080401, end: 20080401
  5. ALLEGRA-D 12 HOUR [Concomitant]
     Dosage: UNK
     Dates: start: 20080218
  6. YASMIN [Suspect]
     Dosage: UNK
     Route: 048
     Dates: start: 20080501, end: 20080501
  7. YAZ [Suspect]
     Dosage: UNK
     Route: 048
     Dates: start: 20080401, end: 20080601
  8. YAZ [Suspect]
     Dosage: UNK
     Route: 048
     Dates: start: 20080601, end: 20080601
  9. YASMIN [Suspect]
     Indication: MENSTRUATION IRREGULAR
     Dosage: UNK
     Route: 048
     Dates: start: 20050601, end: 20060101
  10. ZYRTEC-D 12 HOUR [Concomitant]
     Dosage: UNK UNK, PRN
     Route: 048

REACTIONS (11)
  - PAIN [None]
  - GALLBLADDER DISORDER [None]
  - CHOLELITHIASIS [None]
  - BILIARY DYSKINESIA [None]
  - EMOTIONAL DISTRESS [None]
  - ANXIETY [None]
  - INJURY [None]
  - ABDOMINAL PAIN [None]
  - DISCOMFORT [None]
  - CHOLECYSTITIS CHRONIC [None]
  - FEAR [None]
